FAERS Safety Report 12781828 (Version 1)
Quarter: 2016Q3

REPORT INFORMATION
  Report Type: Spontaneous
  Country: FR (occurrence: FR)
  Receive Date: 20160926
  Receipt Date: 20160926
  Transmission Date: 20161109
  Serious: Yes (Hospitalization, Other)
  Sender: FDA-Public Use
  Company Number: FR-TAKEDA-2016TUS016426

PATIENT
  Age: 62 Year
  Sex: Male

DRUGS (2)
  1. ENTYVIO [Suspect]
     Active Substance: VEDOLIZUMAB
     Indication: COLITIS ULCERATIVE
     Dosage: UNK
     Route: 042
  2. CORTICOSTEROIDS [Concomitant]
     Active Substance: CORTICOSTEROID NOS
     Indication: COLITIS ULCERATIVE
     Dosage: 60 MG, QD

REACTIONS (2)
  - Drug ineffective [Unknown]
  - Colitis [Recovering/Resolving]
